FAERS Safety Report 4496779-3 (Version None)
Quarter: 2004Q4

REPORT INFORMATION
  Report Type: 
  Country: None (occurrence: None)
  Receive Date: 20041109
  Receipt Date: 20041029
  Transmission Date: 20050328
  Serious: Yes (Hospitalization, Disabling)
  Sender: FDA-Public Use
  Company Number: US-MERCK-0411USA00011

PATIENT
  Age: 67 Year
  Sex: Male

DRUGS (8)
  1. VIOXX [Suspect]
     Indication: RHEUMATOID ARTHRITIS
     Route: 048
     Dates: start: 20030301, end: 20041001
  2. METHOTREXATE [Concomitant]
     Route: 065
  3. FOLIC ACID [Concomitant]
     Route: 065
  4. VALIUM [Concomitant]
     Route: 065
  5. BUSPAR [Concomitant]
     Route: 065
  6. PREVACID [Concomitant]
     Route: 065
  7. HYDROCODONE HYDROCHLORIDE [Concomitant]
     Route: 065
  8. MEGACE [Concomitant]
     Route: 065

REACTIONS (1)
  - CEREBROVASCULAR ACCIDENT [None]
